FAERS Safety Report 20698790 (Version 1)
Quarter: 2022Q2

REPORT INFORMATION
  Report Type: Report from Study
  Country: JP (occurrence: JP)
  Receive Date: 20220412
  Receipt Date: 20220412
  Transmission Date: 20220721
  Serious: Yes (Hospitalization, Other)
  Sender: FDA-Public Use
  Company Number: JP-JNJFOC-A-CH2020-203540

PATIENT
  Age: 5 Year
  Sex: Male

DRUGS (20)
  1. OPSUMIT [Suspect]
     Active Substance: MACITENTAN
     Indication: Pulmonary arterial hypertension
     Dosage: 0.5 MG QID
     Route: 048
     Dates: start: 20180215
  2. OPSUMIT [Suspect]
     Active Substance: MACITENTAN
     Dosage: IN THE MORNING AND EVENING
     Route: 048
     Dates: start: 20180215
  3. ENALAPRIL [Concomitant]
     Active Substance: ENALAPRIL
     Indication: Right ventricular failure
     Dosage: 1.5 MG
     Route: 048
  4. ENALAPRIL [Concomitant]
     Active Substance: ENALAPRIL
     Dosage: 1.0 TO 1.5MG B.I.D.
     Route: 048
  5. BISOPROLOL FUMARATE [Concomitant]
     Active Substance: BISOPROLOL FUMARATE
     Indication: Right ventricular failure
     Dosage: 0.313 MG
     Route: 048
  6. BISOPROLOL FUMARATE [Concomitant]
     Active Substance: BISOPROLOL FUMARATE
     Route: 048
  7. PIMOBENDAN [Concomitant]
     Active Substance: PIMOBENDAN
     Indication: Right ventricular failure
     Route: 048
     Dates: start: 20181003
  8. PIMOBENDAN [Concomitant]
     Active Substance: PIMOBENDAN
     Dosage: 0.07-0.5 MG B.I.D.
     Route: 048
     Dates: start: 20200126
  9. LASIX [Concomitant]
     Active Substance: FUROSEMIDE
     Indication: Right ventricular failure
     Route: 048
  10. LASIX [Concomitant]
     Active Substance: FUROSEMIDE
     Dosage: 10-40 MG BID TO TID
     Route: 048
  11. TRICHLORMETHIAZIDE [Concomitant]
     Active Substance: TRICHLORMETHIAZIDE
     Indication: Right ventricular failure
     Dosage: 0.15 MG
     Route: 048
     Dates: start: 20180321
  12. TRICHLORMETHIAZIDE [Concomitant]
     Active Substance: TRICHLORMETHIAZIDE
     Dosage: 0.3 MG
     Route: 048
     Dates: start: 20180322, end: 20180702
  13. TRICHLORMETHIAZIDE [Concomitant]
     Active Substance: TRICHLORMETHIAZIDE
     Route: 048
     Dates: start: 20180703
  14. ASPIRIN [Concomitant]
     Active Substance: ASPIRIN
     Indication: Embolism
     Route: 048
  15. SINGULAIR [Concomitant]
     Active Substance: MONTELUKAST SODIUM
     Indication: Asthma
     Route: 048
  16. SPIRONOLACTONE [Concomitant]
     Active Substance: SPIRONOLACTONE
     Indication: Cardiac failure chronic
     Dosage: 20-40 MG T.I.D.
     Route: 048
     Dates: start: 20191003
  17. ALESION [Concomitant]
     Active Substance: EPINASTINE HYDROCHLORIDE
     Indication: Urticaria
     Route: 048
     Dates: start: 20191128
  18. MIYA-BM [Concomitant]
     Active Substance: CLOSTRIDIUM BUTYRICUM SPORES STRAIN M-55
     Indication: Diarrhoea
     Route: 048
     Dates: start: 20191205
  19. WARFARIN [Concomitant]
     Active Substance: WARFARIN
     Indication: Prophylaxis
     Dosage: 0.3-1 MG Q.D.
     Route: 048
     Dates: start: 20191013
  20. OXYGEN [Concomitant]
     Active Substance: OXYGEN
     Dosage: DOSE UNKNOWN
     Route: 055

REACTIONS (4)
  - Pneumonia bacterial [Recovering/Resolving]
  - Cardiac failure [Recovering/Resolving]
  - Tricuspid valve replacement [Unknown]
  - Off label use [Unknown]

NARRATIVE: CASE EVENT DATE: 20190812
